FAERS Safety Report 21906947 (Version 2)
Quarter: 2023Q1

REPORT INFORMATION
  Report Type: Report from Study
  Country: IL (occurrence: IL)
  Receive Date: 20230125
  Receipt Date: 20230224
  Transmission Date: 20230417
  Serious: Yes (Hospitalization)
  Sender: FDA-Public Use
  Company Number: IL-TAKEDA-2023TUS006653

PATIENT
  Age: 21 Year
  Sex: Female
  Weight: 91 kg

DRUGS (7)
  1. LANADELUMAB [Suspect]
     Active Substance: LANADELUMAB
     Indication: Hereditary angioedema
     Dosage: 300 MILLIGRAM, Q2WEEKS
     Route: 058
     Dates: start: 20200824
  2. PFIZER-BIONTECH COVID-19 VACCINE [Concomitant]
     Active Substance: TOZINAMERAN
     Indication: COVID-19 immunisation
     Dosage: 30 MICROGRAM
     Route: 030
     Dates: start: 20210123, end: 20210123
  3. PFIZER-BIONTECH COVID-19 VACCINE [Concomitant]
     Active Substance: TOZINAMERAN
     Dosage: 30 MICROGRAM
     Route: 030
     Dates: start: 20210213, end: 20210213
  4. PROGESTERONE [Concomitant]
     Active Substance: PROGESTERONE
     Indication: Contraception
     Dosage: 5 MILLIGRAM
     Route: 048
     Dates: start: 20181101
  5. CONTROLOC [Concomitant]
     Active Substance: PANTOPRAZOLE SODIUM
     Indication: Gastrooesophageal reflux disease
     Dosage: 40 MILLIGRAM
     Route: 042
     Dates: start: 20230112, end: 20230112
  6. PERFALGAN [Concomitant]
     Active Substance: ACETAMINOPHEN
     Indication: Pain
     Dosage: 1000 MILLIGRAM
     Route: 042
     Dates: start: 20230112, end: 20230112
  7. METAMIZOLE [Concomitant]
     Active Substance: METAMIZOLE
     Indication: Abdominal pain
     Dosage: 1000 MILLIGRAM
     Route: 048
     Dates: start: 20221222, end: 20221222

REACTIONS (1)
  - Hereditary angioedema [Recovered/Resolved]

NARRATIVE: CASE EVENT DATE: 20221220
